FAERS Safety Report 19401175 (Version 9)
Quarter: 2022Q2

REPORT INFORMATION
  Report Type: Report from Study
  Country: FR (occurrence: FR)
  Receive Date: 20210610
  Receipt Date: 20220630
  Transmission Date: 20220721
  Serious: Yes (Other)
  Sender: FDA-Public Use
  Company Number: FR-BRISTOL-MYERS SQUIBB COMPANY-BMS-2021-054339

PATIENT
  Age: 49 Year
  Sex: Male
  Weight: 95 kg

DRUGS (11)
  1. IPILIMUMAB [Suspect]
     Active Substance: IPILIMUMAB
     Indication: Renal cell carcinoma
     Route: 042
     Dates: start: 20201229, end: 20210421
  2. ARSENICUM ALBUM [Concomitant]
     Active Substance: HOMEOPATHICS
     Indication: Diarrhoea
     Dosage: 1 DOSAGE FORM= 1 UNITS NOS
     Route: 048
     Dates: start: 202103
  3. BASILICUM RUPHA [Concomitant]
     Indication: Diarrhoea
     Dosage: 1 DOSAGE FORM= 1 UNITS NOS
     Route: 048
     Dates: start: 202103
  4. DESLORATADINE [Concomitant]
     Active Substance: DESLORATADINE
     Indication: Seasonal allergy
     Dosage: 5 MILLIGRAM
     Route: 048
     Dates: start: 202104, end: 20210420
  5. CETIRIZINE [Concomitant]
     Active Substance: CETIRIZINE HYDROCHLORIDE
     Indication: Rhinitis allergic
     Dosage: 10 MILLIGRAM
     Route: 048
     Dates: start: 20210420, end: 20210513
  6. CETIRIZINE [Concomitant]
     Active Substance: CETIRIZINE HYDROCHLORIDE
     Indication: Seasonal allergy
     Dosage: 1 DOSAGE FORM: 1 DF = 1 UNITS NOS
     Route: 048
     Dates: start: 202105, end: 202106
  7. RABEPRAZOLE SODIUM [Concomitant]
     Active Substance: RABEPRAZOLE SODIUM
     Indication: Gastrooesophageal reflux disease
     Dosage: 1 DOSAGE FORM = 1 UNITS NOS
     Route: 048
     Dates: start: 20210427, end: 20210506
  8. VOGALENE [Concomitant]
     Active Substance: METOPIMAZINE
     Indication: Product used for unknown indication
     Dosage: 1 DOSAGE FORM = 1 UNIT NOS
     Route: 048
     Dates: start: 202105, end: 202106
  9. MOTILIUM [Concomitant]
     Active Substance: DOMPERIDONE
     Indication: Product used for unknown indication
     Dosage: 1 DOSAGE FORM = 1 UNIT NOS
     Route: 048
     Dates: start: 202105, end: 202106
  10. OMEPRAZOLE [Concomitant]
     Active Substance: OMEPRAZOLE
     Indication: Product used for unknown indication
     Dosage: 1 DOSAGE FORM = 1UNIT NOS
     Route: 048
     Dates: start: 202105, end: 202106
  11. SMECTA [MONTMORILLONITE] [Concomitant]
     Indication: Product used for unknown indication
     Dosage: 1 DOSAGE FORM = 1 UNIT NOS
     Route: 048
     Dates: start: 202105, end: 202106

REACTIONS (1)
  - Mesenteric panniculitis [Recovered/Resolved]

NARRATIVE: CASE EVENT DATE: 20210503
